FAERS Safety Report 7224751-9 (Version None)
Quarter: 2011Q1

REPORT INFORMATION
  Report Type: 
  Country: None (occurrence: None)
  Receive Date: 20110113
  Receipt Date: 20110111
  Transmission Date: 20110831
  Serious: Yes (Other)
  Sender: FDA-Public Use
  Company Number: IL-BAYER-201034985GPV

PATIENT
  Sex: Male
  Weight: 72.2 kg

DRUGS (15)
  1. SORAFENIB (RAF KINASE INHIBITOR) [Suspect]
     Dosage: 400 MG, BID
     Route: 048
     Dates: start: 20100627, end: 20100706
  2. ERLOTINIB [Suspect]
     Indication: HEPATIC NEOPLASM MALIGNANT
     Dosage: 150 MG, QD (CYCLE 1)
     Route: 048
     Dates: start: 20100627, end: 20100706
  3. IKAPRESS [Concomitant]
     Indication: HYPERTENSION
     Dosage: 240 MG (DAILY DOSE), ,
     Dates: start: 19900101
  4. ASPIRIN [Concomitant]
     Indication: THROMBOSIS PROPHYLAXIS
     Dosage: 75 MG (DAILY DOSE), , ORAL
     Route: 048
     Dates: start: 20050101, end: 20100617
  5. ELTROXIN [Concomitant]
     Indication: THYROIDECTOMY
     Dosage: 1200 MG (DAILY DOSE), ,
     Dates: start: 20040101
  6. ULTRAVIST 300 [Concomitant]
     Indication: COMPUTERISED TOMOGRAM
     Dosage: 80 CC INTERMITTENT
     Dates: start: 20100620, end: 20100801
  7. CALCIUM [Concomitant]
     Indication: HYPOCALCAEMIA
     Dosage: 1600 MG (DAILY DOSE), ,
     Dates: start: 20050101
  8. TELEBRIX GASTRO [IODINE,IOXITALAMATE MEGLUMINE] [Concomitant]
     Indication: COMPUTERISED TOMOGRAM
     Dosage: 50 CC
     Dates: start: 20100620, end: 20100801
  9. SORAFENIB (RAF KINASE INHIBITOR) [Suspect]
     Dosage: 400 MG, BID
     Route: 048
     Dates: start: 20100715, end: 20100801
  10. VITAMIN D [Concomitant]
     Indication: SUPPLEMENTATION THERAPY
     Dosage: 1 DF (DAILY DOSE), QD, ORAL
     Route: 048
     Dates: start: 20070101
  11. INSPRA [Concomitant]
     Indication: HYPOKALAEMIA
     Dosage: 12.5 MG (DAILY DOSE), ,
     Dates: start: 20000101
  12. FOLIC ACID [Concomitant]
     Indication: VITAMIN SUPPLEMENTATION
     Dosage: 5 MG (DAILY DOSE), ,
     Dates: start: 20000101
  13. ERLOTINIB [Suspect]
     Dosage: 100 MG, QD
     Route: 048
     Dates: start: 20100715, end: 20100801
  14. TAMSULOSIN [Concomitant]
     Indication: URINARY RETENTION
     Dosage: 0.4 MG (DAILY DOSE), ,
     Dates: start: 20090101
  15. ASPIRIN [Concomitant]
     Dosage: 75 MG (DAILY DOSE), ,
     Dates: start: 20100627

REACTIONS (1)
  - UVEITIS [None]
